FAERS Safety Report 6595905-X (Version None)
Quarter: 2010Q1

REPORT INFORMATION
  Report Type: 
  Country: None (occurrence: None)
  Receive Date: 20100216
  Receipt Date: 20100204
  Transmission Date: 20100710
  Serious: Yes (Hospitalization, Other)
  Sender: FDA-Public Use
  Company Number: 2010US000411

PATIENT
  Sex: Male

DRUGS (1)
  1. PROTOPIC [Suspect]
     Indication: ECZEMA
     Dosage: TOPICAL
     Route: 061

REACTIONS (12)
  - ARTHRITIS BACTERIAL [None]
  - CELLULITIS [None]
  - ECZEMA HERPETICUM [None]
  - HERPES ZOSTER [None]
  - LYMPHOCYTE COUNT DECREASED [None]
  - NEUTROPHIL COUNT DECREASED [None]
  - OSTEOMYELITIS [None]
  - SKIN EXFOLIATION [None]
  - SKIN ULCER [None]
  - STAPHYLOCOCCAL INFECTION [None]
  - TREATMENT FAILURE [None]
  - VARICELLA [None]
